FAERS Safety Report 19747126 (Version 3)
Quarter: 2021Q4

REPORT INFORMATION
  Report Type: Spontaneous
  Country: US (occurrence: US)
  Receive Date: 20210826
  Receipt Date: 20211220
  Transmission Date: 20220303
  Serious: No
  Sender: FDA-Public Use
  Company Number: US-GSKCCFUS-CASE-01142585_AE-67219

PATIENT
  Age: 59 Year
  Sex: Male

DRUGS (2)
  1. NUCALA [Suspect]
     Active Substance: MEPOLIZUMAB
     Indication: Asthma
     Dosage: 100 MG, VA
     Route: 058
     Dates: start: 20210303
  2. NUCALA [Suspect]
     Active Substance: MEPOLIZUMAB
     Indication: Nasal polyps

REACTIONS (8)
  - Fungal infection [Not Recovered/Not Resolved]
  - Rash [Not Recovered/Not Resolved]
  - Pain [Not Recovered/Not Resolved]
  - Erythema [Not Recovered/Not Resolved]
  - Infected cyst [Unknown]
  - Abdominal pain upper [Unknown]
  - Diarrhoea [Unknown]
  - Drug ineffective [Unknown]

NARRATIVE: CASE EVENT DATE: 20210701
